FAERS Safety Report 4421165-1 (Version None)
Quarter: 2004Q3

REPORT INFORMATION
  Report Type: 
  Country: None (occurrence: None)
  Receive Date: 20040804
  Receipt Date: 22000722
  Transmission Date: 20050211
  Serious: Yes (Hospitalization)
  Sender: FDA-Public Use
  Company Number: GB-JNJFOC-20031202836

PATIENT
  Age: 59 Year
  Sex: Female

DRUGS (7)
  1. REMICADE [Suspect]
     Indication: RHEUMATOID ARTHRITIS
     Dosage: 270 MG, INTRAVENOUS
     Route: 042
     Dates: start: 20030331, end: 20030611
  2. METHOTREXATE [Concomitant]
  3. INDOMETHACIN [Concomitant]
  4. PREDNISOLONE [Concomitant]
  5. CO-PROXAMOL (APROREX) [Concomitant]
  6. HRT (ANDROGENS AND FEMALE SEX HORMONES IN COMB) [Concomitant]
  7. FOLIC AICD (FOLIC ACID) [Concomitant]

REACTIONS (4)
  - BALANCE DISORDER [None]
  - CEREBRAL DISORDER [None]
  - DEAFNESS NEUROSENSORY [None]
  - NUCLEAR MAGNETIC RESONANCE IMAGING BRAIN ABNORMAL [None]
